FAERS Safety Report 7788812-8 (Version None)
Quarter: 2011Q3

REPORT INFORMATION
  Report Type: 
  Country: None (occurrence: None)
  Receive Date: 20110928
  Receipt Date: 20110913
  Transmission Date: 20111222
  Serious: Yes (Hospitalization)
  Sender: FDA-Public Use
  Company Number: DSJ-2011-13615

PATIENT
  Sex: Male

DRUGS (5)
  1. SITAGLIPTIN (METFORMIN AND SITAGLIPTIN) (METFORMIN AND SITAGLIPTIN) [Concomitant]
  2. CLOPIDOGREL (CLOPIDOGREL) (CLOPIDOGREL) [Concomitant]
  3. METOPROLOL SUCCINATE [Concomitant]
  4. PANTOPRAZOLE (PANTOPRAZOLE) (PANTOPRAZOLE) [Concomitant]
  5. BENICAR [Suspect]
     Indication: HYPERTENSION
     Dosage: 1 IN 1 D, PER ORAL, 40 MG (40 MG, 1 IN 1 D, PER ORAL
     Route: 048
     Dates: start: 20060101, end: 20110101

REACTIONS (3)
  - ARTERIOSCLEROSIS [None]
  - OBSTRUCTION [None]
  - DRUG INEFFECTIVE [None]
